FAERS Safety Report 9607500 (Version 1)
Quarter: 2013Q4

REPORT INFORMATION
  Report Type: Spontaneous
  Country: US (occurrence: None)
  Receive Date: 20131007
  Receipt Date: 20131007
  Transmission Date: 20140711
  Serious: Yes (Life-Threatening, Hospitalization, Disabling)
  Sender: FDA-Public Use
  Company Number: None

PATIENT
  Age: 42 Year
  Sex: Female

DRUGS (4)
  1. BEYAZ [Suspect]
     Indication: MENSTRUATION IRREGULAR
     Dosage: TAKEN BY MOUTH
     Route: 048
     Dates: start: 20121222, end: 20130205
  2. MULTI-VITAMIN [Concomitant]
  3. CALCIUM [Concomitant]
  4. CODE LIVER [Concomitant]

REACTIONS (1)
  - Pulmonary embolism [None]
